FAERS Safety Report 8417811-8 (Version None)
Quarter: 2012Q2

REPORT INFORMATION
  Report Type: 
  Country: None (occurrence: None)
  Receive Date: 20120607
  Receipt Date: 20120605
  Transmission Date: 20120825
  Serious: No
  Sender: FDA-Public Use
  Company Number: US-PFIZER INC-2012135355

PATIENT
  Sex: Female
  Weight: 75 kg

DRUGS (3)
  1. LEVOTHYROXINE [Concomitant]
     Indication: HYPOTHYROIDISM
     Dosage: 50 UG, DAILY
  2. INSULIN [Concomitant]
     Indication: DIABETES MELLITUS
     Dosage: 24 IU, DAILY
  3. LIPITOR [Suspect]
     Indication: BLOOD CHOLESTEROL INCREASED
     Dosage: 20 MG, DAILY
     Route: 048
     Dates: start: 20120501, end: 20120501

REACTIONS (2)
  - ABDOMINAL DISCOMFORT [None]
  - BALANCE DISORDER [None]
